FAERS Safety Report 13611441 (Version 2)
Quarter: 2017Q4

REPORT INFORMATION
  Report Type: Spontaneous
  Country: US (occurrence: US)
  Receive Date: 20170605
  Receipt Date: 20171213
  Transmission Date: 20180320
  Serious: No
  Sender: FDA-Public Use
  Company Number: US-PFIZER INC-2017241641

PATIENT
  Age: 53 Year
  Sex: Female

DRUGS (18)
  1. LYRICA [Suspect]
     Active Substance: PREGABALIN
     Indication: FIBROMYALGIA
     Dosage: 100 MG, UNK
  2. LYRICA [Suspect]
     Active Substance: PREGABALIN
     Indication: OSTEOARTHRITIS
     Dosage: 150 MG, 2X/DAY
     Dates: start: 20171207
  3. EZETIMIBE. [Concomitant]
     Active Substance: EZETIMIBE
     Dosage: 10 MG, UNK
  4. ZOLPIDEM [Concomitant]
     Active Substance: ZOLPIDEM\ZOLPIDEM TARTRATE
     Dosage: 20 MG, 1X/DAY
  5. EFFEXOR [Concomitant]
     Active Substance: VENLAFAXINE HYDROCHLORIDE
     Dosage: UNK, DAILY [225]
  6. SELENIUM [Concomitant]
     Active Substance: SELENIUM
     Dosage: UNK
  7. LYRICA [Suspect]
     Active Substance: PREGABALIN
     Indication: DIABETIC NEUROPATHY
  8. VICTOZA [Concomitant]
     Active Substance: LIRAGLUTIDE
     Dosage: UNK, 1X/DAY [1.8 X 1 A DAY]
  9. CENEO [Concomitant]
     Dosage: UNK UNK, 1X/DAY
  10. CLONIDINE. [Concomitant]
     Active Substance: CLONIDINE
     Dosage: 0.3 MG, 1X/DAY
  11. OMEPRAZOLE. [Concomitant]
     Active Substance: OMEPRAZOLE
     Dosage: 20 MG, 1X/DAY
  12. FLUTICASONE. [Concomitant]
     Active Substance: FLUTICASONE
     Dosage: UNK, 2X/DAY
  13. LANTUS [Concomitant]
     Active Substance: INSULIN GLARGINE
     Dosage: 25 IU, DAILY
  14. ROSUVASTATIN. [Concomitant]
     Active Substance: ROSUVASTATIN
     Dosage: 20 MG, UNK
  15. ATROVENT [Concomitant]
     Active Substance: IPRATROPIUM BROMIDE
     Dosage: UNK, AS NEEDED
  16. VITAMIN D3 [Concomitant]
     Active Substance: CHOLECALCIFEROL
     Dosage: UNK
  17. OXCARBAZEPINE. [Concomitant]
     Active Substance: OXCARBAZEPINE
     Dosage: UNK, 2X/DAY [300]
  18. FISH OIL [Concomitant]
     Active Substance: FISH OIL
     Dosage: UNK

REACTIONS (3)
  - Pre-existing condition improved [Unknown]
  - Therapeutic response unexpected [Unknown]
  - Drug ineffective [Unknown]
